FAERS Safety Report 5659476-4 (Version None)
Quarter: 2008Q1

REPORT INFORMATION
  Report Type: 
  Country: None (occurrence: None)
  Receive Date: 20080311
  Receipt Date: 20080304
  Transmission Date: 20080703
  Serious: Yes (Other)
  Sender: FDA-Public Use
  Company Number: PHHY2008BR02677

PATIENT
  Sex: Male

DRUGS (1)
  1. ACLASTA [Suspect]

REACTIONS (2)
  - BACTERAEMIA [None]
  - DEHYDRATION [None]
